FAERS Safety Report 6085590-8 (Version None)
Quarter: 2009Q1

REPORT INFORMATION
  Report Type: 
  Country: None (occurrence: None)
  Receive Date: 20090220
  Receipt Date: 20090210
  Transmission Date: 20090719
  Serious: Yes (Other)
  Sender: FDA-Public Use
  Company Number: US-PFIZER INC-2008151766

PATIENT
  Sex: Female

DRUGS (24)
  1. DEPO-PROVERA [Suspect]
     Indication: MENOPAUSAL SYMPTOMS
     Dosage: 250 MG, MONTHLY
     Route: 030
     Dates: start: 19951006
  2. CLIMARA [Suspect]
     Indication: MENOPAUSAL SYMPTOMS
     Dosage: UNK
     Route: 062
     Dates: start: 19951006, end: 19970207
  3. ESTRADERM [Suspect]
     Indication: MENOPAUSAL SYMPTOMS
     Dosage: UNK
     Route: 062
     Dates: end: 19951006
  4. PREMPRO [Suspect]
     Indication: MENOPAUSAL SYMPTOMS
     Dosage: UNK
     Dates: start: 19970207, end: 20000101
  5. CYCRIN [Suspect]
     Indication: MENOPAUSAL SYMPTOMS
     Dosage: 5 MG, 1X/DAY
     Dates: start: 19951006, end: 19970207
  6. PAXIL [Concomitant]
     Indication: DEPRESSION
     Dosage: 30 MG, UNK
     Route: 048
     Dates: start: 19960101
  7. PAXIL [Concomitant]
     Indication: ANXIETY
  8. VIOXX [Concomitant]
     Indication: OSTEOARTHRITIS
     Dosage: 25 MG, 1X/DAY
     Route: 048
     Dates: start: 19900101, end: 19950101
  9. EXCEDRIN (MIGRAINE) [Concomitant]
  10. BEXTRA [Concomitant]
     Indication: OSTEOARTHRITIS
  11. BONIVA [Concomitant]
  12. HYDROCHLOROTHIAZIDE [Concomitant]
  13. ADVIL LIQUI-GELS [Concomitant]
     Indication: MIGRAINE
     Dosage: UNK
     Dates: start: 19930101, end: 19980101
  14. ADVIL LIQUI-GELS [Concomitant]
     Indication: OSTEOARTHRITIS
  15. TYLENOL [Concomitant]
     Indication: OSTEOARTHRITIS
     Dosage: UNK
     Dates: start: 19960101
  16. ELIMITE [Concomitant]
     Indication: ACARODERMATITIS
     Dosage: UNK
     Dates: start: 19980101
  17. RELAFEN [Concomitant]
     Indication: OSTEOARTHRITIS
  18. RELAFEN [Concomitant]
     Indication: ARTHRALGIA
  19. DAYPRO [Concomitant]
     Indication: OSTEOARTHRITIS
     Dosage: 1200 MG, UNK
     Route: 048
     Dates: start: 19990101
  20. ALEVE [Concomitant]
     Indication: OSTEOARTHRITIS
     Dosage: UNK
     Dates: start: 20050101
  21. CELECOXIB [Concomitant]
     Indication: OSTEOARTHRITIS
     Dosage: UNK
     Dates: start: 20050101
  22. FAMOTIDINE [Concomitant]
     Dosage: UNK
     Dates: start: 20060101
  23. CAPOTEN [Concomitant]
     Indication: HYPERTENSION
     Dosage: 1 DF, 2X/DAY
     Dates: start: 20050224
  24. FOSAMAX [Concomitant]
     Indication: OSTEOPENIA
     Dosage: 70 MG, UNK
     Dates: start: 20050201

REACTIONS (1)
  - BREAST CANCER [None]
